FAERS Safety Report 20673291 (Version 4)
Quarter: 2022Q4

REPORT INFORMATION
  Report Type: Spontaneous
  Country: US (occurrence: US)
  Receive Date: 20220405
  Receipt Date: 20221108
  Transmission Date: 20230113
  Serious: Yes (Other)
  Sender: FDA-Public Use
  Company Number: US-LUPIN PHARMACEUTICALS INC.-2022-04768

PATIENT

DRUGS (1)
  1. LISINOPRIL [Suspect]
     Active Substance: LISINOPRIL
     Indication: Product used for unknown indication
     Dosage: UNK
     Route: 065

REACTIONS (9)
  - Narcolepsy [Recovered/Resolved]
  - Bedridden [Recovered/Resolved]
  - Hepatic pain [Not Recovered/Not Resolved]
  - Food allergy [Recovered/Resolved]
  - Abdominal discomfort [Recovered/Resolved]
  - Headache [Recovered/Resolved]
  - Abdominal pain upper [Recovered/Resolved]
  - Asthenia [Recovered/Resolved]
  - Pruritus [Recovered/Resolved]
